FAERS Safety Report 18414815 (Version 1)
Quarter: 2020Q4

REPORT INFORMATION
  Report Type: Spontaneous
  Country: US (occurrence: US)
  Receive Date: 20201022
  Receipt Date: 20201022
  Transmission Date: 20210114
  Serious: No
  Sender: FDA-Public Use
  Company Number: US-MYLANLABS-2020M1087335

PATIENT
  Age: 53 Year
  Sex: Female

DRUGS (1)
  1. ESTRADIOL TRANSDERMAL SYSTEM [Suspect]
     Active Substance: ESTRADIOL
     Indication: PRODUCT USED FOR UNKNOWN INDICATION
     Dosage: UNK
     Route: 062

REACTIONS (9)
  - Paraesthesia [Recovering/Resolving]
  - Mood altered [Recovering/Resolving]
  - Dizziness [Recovering/Resolving]
  - Application site vesicles [Unknown]
  - Product packaging issue [Unknown]
  - Taste disorder [Recovering/Resolving]
  - Product quality issue [Unknown]
  - Paraesthesia oral [Recovering/Resolving]
  - Application site pain [Unknown]

NARRATIVE: CASE EVENT DATE: 20201014
